FAERS Safety Report 10078370 (Version 1)
Quarter: 2014Q2

REPORT INFORMATION
  Report Type: Spontaneous
  Country: US (occurrence: US)
  Receive Date: 20140415
  Receipt Date: 20140415
  Transmission Date: 20141212
  Serious: No
  Sender: FDA-Public Use
  Company Number: US-009507513-1403USA006445

PATIENT
  Sex: Male

DRUGS (2)
  1. DULERA [Suspect]
     Dosage: 2 SPRAYS, BID
     Route: 055
     Dates: start: 2013
  2. DULERA [Suspect]
     Dosage: 1 SPRAY, BID
     Route: 055

REACTIONS (4)
  - Drug dose omission [Unknown]
  - Underdose [Unknown]
  - Product quality issue [Unknown]
  - No adverse event [Unknown]
